FAERS Safety Report 20417907 (Version 1)
Quarter: 2022Q1

REPORT INFORMATION
  Report Type: Spontaneous
  Country: US (occurrence: US)
  Receive Date: 20220202
  Receipt Date: 20220202
  Transmission Date: 20220423
  Serious: No
  Sender: FDA-Public Use
  Company Number: US-SA-SAC20220129000610

PATIENT
  Age: 58 Year
  Sex: Female
  Weight: 113 kg

DRUGS (18)
  1. DUPIXENT [Suspect]
     Active Substance: DUPILUMAB
     Indication: Dermatitis atopic
     Dosage: 300 MG, QOW
     Route: 058
     Dates: start: 20211015
  2. MUCINEX [Concomitant]
     Active Substance: GUAIFENESIN
     Dosage: 12H,
  3. PREDNISONE [Concomitant]
     Active Substance: PREDNISONE
  4. FISH OIL [Concomitant]
     Active Substance: FISH OIL
  5. LOSARTAN POTASSIUM [Concomitant]
     Active Substance: LOSARTAN POTASSIUM
  6. HYDROCHLOROTHIAZIDE [Concomitant]
     Active Substance: HYDROCHLOROTHIAZIDE
  7. MINOCYCLINE HYDROCHLORIDE [Concomitant]
     Active Substance: MINOCYCLINE HYDROCHLORIDE
     Dosage: ER 24H
  8. AMLODIPINE BESYLATE [Concomitant]
     Active Substance: AMLODIPINE BESYLATE
  9. METRONIDAZOLE [Concomitant]
     Active Substance: METRONIDAZOLE
  10. METFORMIN HYDROCHLORIDE [Concomitant]
     Active Substance: METFORMIN HYDROCHLORIDE
  11. MELOXICAM [Concomitant]
     Active Substance: MELOXICAM
  12. HERBALS\TURMERIC [Concomitant]
     Active Substance: HERBALS\TURMERIC
  13. GOLD BOND ORIGINAL STRENGTH POWDER [Concomitant]
     Active Substance: MENTHOL\ZINC OXIDE
  14. VITAMINS NOS [Concomitant]
     Active Substance: VITAMINS
  15. VALERIAN ROOT [VALERIANA OFFICINALIS] [Concomitant]
  16. CLOBETASOL [Concomitant]
     Active Substance: CLOBETASOL
  17. AVEENO [Concomitant]
     Active Substance: DIMETHICONE\HOMOSALATE\OCTINOXATE\OCTISALATE\TITANIUM DIOXIDE
  18. NEURIVA BRAIN PERFORMANCE PLUS [Concomitant]

REACTIONS (2)
  - Laryngitis [Recovering/Resolving]
  - Cough [Recovering/Resolving]

NARRATIVE: CASE EVENT DATE: 20220101
